FAERS Safety Report 4883503-5 (Version None)
Quarter: 2006Q1

REPORT INFORMATION
  Report Type: 
  Country: None (occurrence: None)
  Receive Date: 20060113
  Receipt Date: 20060103
  Transmission Date: 20060701
  Serious: Yes (Other)
  Sender: FDA-Public Use
  Company Number: 2006002671

PATIENT
  Age: 45 Year
  Sex: Female

DRUGS (6)
  1. CELECOXIB                 (CELECOXIB) [Suspect]
     Indication: OSTEOARTHRITIS
     Dosage: 15 MG (15 MG, 1 IN 1 D)
     Route: 048
  2. ASPIRIN [Suspect]
     Indication: OSTEOARTHRITIS
     Dosage: 10 MG (10 MG, 1 IN 1 D),
  3. PLACEBO                  (PLACEBO) [Suspect]
     Indication: OSTEOARTHRITIS
  4. CORTICOSTEROIDS (CORTICOSTEROIDS) [Concomitant]
  5. ALL OTHER THERAPEUTIC PRODUCTS [Concomitant]
  6. ALL OTHER THERAPEUTIC PRODUCTS [Concomitant]

REACTIONS (2)
  - ANALGESIC ASTHMA SYNDROME [None]
  - ASTHMA [None]
